FAERS Safety Report 24732048 (Version 1)
Quarter: 2024Q4

REPORT INFORMATION
  Report Type: Other
  Country: KR (occurrence: KR)
  Receive Date: 20241213
  Receipt Date: 20241213
  Transmission Date: 20250115
  Serious: Yes (Death, Other)
  Sender: Vantive US Healthcare
  Company Number: KR-VANTIVE-2024VAN021614

PATIENT
  Age: 49 Year
  Sex: Female
  Weight: 59.5 kg

DRUGS (22)
  1. CALCIUM CHLORIDE\MAGNESIUM CHLORIDE\POTASSIUM CHLORIDE\SODIUM BICARBON [Suspect]
     Active Substance: CALCIUM CHLORIDE\MAGNESIUM CHLORIDE\POTASSIUM CHLORIDE\SODIUM BICARBONATE\SODIUM CHLORIDE\SODIUM PHO
     Route: 065
  2. BISOPROLOL FUMARATE [Concomitant]
     Active Substance: BISOPROLOL FUMARATE
     Dosage: 2.5 MG, 1 DAY
     Route: 048
  3. DILTIAZEM HYDROCHLORIDE [Concomitant]
     Active Substance: DILTIAZEM HYDROCHLORIDE
     Dosage: 30 MG, 0.5 DAY
     Route: 048
  4. CHLORPHENIRAMINE MALEATE [Concomitant]
     Active Substance: CHLORPHENIRAMINE MALEATE
     Dosage: 100 MG 0.33 DAY
     Route: 048
  5. ACETYLCYSTEINE [Concomitant]
     Active Substance: ACETYLCYSTEINE
     Dosage: 4 MG PER DAY
     Route: 042
     Dates: start: 20190715, end: 20190905
  6. MELOXICAM [Concomitant]
     Active Substance: MELOXICAM
     Dosage: 7.5 MG PER 0.5 DAY
     Route: 048
     Dates: start: 20190710, end: 20190814
  7. PREGABALIN [Concomitant]
     Active Substance: PREGABALIN
     Dosage: 1 (UNIT NOT REPORTED) PER 0.5 DAY
     Route: 065
     Dates: start: 20181215, end: 20190814
  8. TAMSULOSIN HYDROCHLORIDE [Concomitant]
     Active Substance: TAMSULOSIN HYDROCHLORIDE
     Dosage: 0.2MG PER DAY
     Route: 065
  9. SUCRALFATE [Concomitant]
     Active Substance: SUCRALFATE
     Dosage: 1G PER DAY
     Route: 065
     Dates: start: 20190804, end: 20190814
  10. LANSOPRAZOLE [Concomitant]
     Active Substance: LANSOPRAZOLE
     Dosage: 30 MG PER DAY
     Route: 048
     Dates: start: 20190505, end: 20190814
  11. OXYCODONE HYDROCHLORIDE [Concomitant]
     Active Substance: OXYCODONE HYDROCHLORIDE
     Dosage: 20 MG PER DAY
     Route: 042
  12. OXYCODONE HYDROCHLORIDE [Concomitant]
     Active Substance: OXYCODONE HYDROCHLORIDE
     Dosage: 10 MG PER DAY
     Route: 042
  13. PALONOSETRON HYDROCHLORIDE [Concomitant]
     Active Substance: PALONOSETRON HYDROCHLORIDE
     Dosage: 0.25 MG PER DAY
     Route: 042
     Dates: start: 20190715, end: 20190905
  14. ACYCLOVIR [Concomitant]
     Active Substance: ACYCLOVIR
     Dosage: 400 MG PER 0.5 DAY
     Route: 048
  15. NYSTATIN [Concomitant]
     Active Substance: NYSTATIN
     Dosage: 5 ML PER 0.33 DAY
     Route: 048
  16. PIPERACILLIN SODIUM\TAZOBACTAM SODIUM [Concomitant]
     Active Substance: PIPERACILLIN SODIUM\TAZOBACTAM SODIUM
     Dosage: 4.5G PER 0.25 DAY
     Route: 042
     Dates: start: 20190812, end: 20190905
  17. L-ornithine-l-aspartate hydrate [Concomitant]
     Dosage: 1000 ML PER DAY
     Route: 042
     Dates: start: 20190806, end: 20190905
  18. TEICOPLANIN [Concomitant]
     Active Substance: TEICOPLANIN
     Dosage: 400 MG
     Route: 042
  19. METHYLPREDNISOLONE SODIUM SUCCINATE [Concomitant]
     Active Substance: METHYLPREDNISOLONE SODIUM SUCCINATE
     Dosage: PER 0.5 DAY
     Route: 042
  20. FUROSEMIDE [Concomitant]
     Active Substance: FUROSEMIDE
     Dosage: 40 MG PER DAY
     Route: 042
  21. URSODIOL [Concomitant]
     Active Substance: URSODIOL
     Dosage: 100MG, 0.33 DAY
     Route: 048
  22. TACROLIMUS [Concomitant]
     Active Substance: TACROLIMUS
     Dosage: PER DAY
     Route: 042

REACTIONS (1)
  - Lymphocytic leukaemia [Fatal]

NARRATIVE: CASE EVENT DATE: 20190906
